FAERS Safety Report 16704344 (Version 1)
Quarter: 2019Q3

REPORT INFORMATION
  Report Type: Spontaneous
  Country: US (occurrence: US)
  Receive Date: 20190814
  Receipt Date: 20190814
  Transmission Date: 20191004
  Serious: No
  Sender: FDA-Public Use
  Company Number: US-SA-2019SA138117

PATIENT
  Sex: Female

DRUGS (1)
  1. DUPIXENT [Suspect]
     Active Substance: DUPILUMAB
     Dosage: UNK UNK, OTHER
     Route: 058
     Dates: start: 201903

REACTIONS (4)
  - Erythema [Recovered/Resolved]
  - Erythema [Unknown]
  - Sunburn [Recovered/Resolved]
  - Rash macular [Recovered/Resolved]
